FAERS Safety Report 7409528-3 (Version None)
Quarter: 2011Q2

REPORT INFORMATION
  Report Type: 
  Country: None (occurrence: None)
  Receive Date: 20110412
  Receipt Date: 20110401
  Transmission Date: 20111010
  Serious: Yes (Other)
  Sender: FDA-Public Use
  Company Number: PHHY2011BR27469

PATIENT
  Sex: Female

DRUGS (2)
  1. VYTORIN [Suspect]
     Dosage: 10/20 MG
  2. DIOVAN HCT [Suspect]
     Dosage: 320/12.5 MG

REACTIONS (3)
  - DENGUE FEVER [None]
  - FEELING ABNORMAL [None]
  - NAUSEA [None]
